FAERS Safety Report 24830823 (Version 2)
Quarter: 2025Q4

REPORT INFORMATION
  Report Type: Spontaneous
  Country: EU (occurrence: EU)
  Receive Date: 20250110
  Receipt Date: 20251215
  Transmission Date: 20260118
  Serious: Yes (Life-Threatening, Hospitalization, Other)
  Sender: CHEPLAPHARM
  Company Number: None

PATIENT
  Age: 80 Year
  Sex: Female

DRUGS (11)
  1. CLONAZEPAM [Suspect]
     Active Substance: CLONAZEPAM
     Route: 048
  2. OMNIPAQUE [Suspect]
     Active Substance: IOHEXOL
     Indication: Diagnostic procedure
     Route: 042
     Dates: start: 20241128
  3. OMNIPAQUE [Suspect]
     Active Substance: IOHEXOL
     Indication: Metastases to central nervous system
     Route: 042
     Dates: start: 20241128
  4. OMNIPAQUE [Suspect]
     Active Substance: IOHEXOL
     Indication: Non-small cell lung cancer stage IV
     Route: 042
     Dates: start: 20241128
  5. PEMBROLIZUMAB [Suspect]
     Active Substance: PEMBROLIZUMAB
     Dates: start: 20241127
  6. PACLITAXEL [Suspect]
     Active Substance: PACLITAXEL
     Route: 042
  7. CARBOPLATIN [Suspect]
     Active Substance: CARBOPLATIN
     Route: 042
  8. PROPRANOLOL HYDROCHLORIDE [Suspect]
     Active Substance: PROPRANOLOL HYDROCHLORIDE
  9. ESCITALOPRAM [Suspect]
     Active Substance: ESCITALOPRAM OXALATE
     Route: 048
  10. ALENDRONATE SODIUM [Suspect]
     Active Substance: ALENDRONATE SODIUM
     Route: 048
  11. SIMVASTATIN [Suspect]
     Active Substance: SIMVASTATIN

REACTIONS (4)
  - Anaphylactic reaction [Recovered/Resolved with Sequelae]
  - Loss of consciousness [Recovered/Resolved with Sequelae]
  - Cardiac arrest [Recovered/Resolved with Sequelae]
  - Pneumonia aspiration [Unknown]

NARRATIVE: CASE EVENT DATE: 20241128
